FAERS Safety Report 19665575 (Version 1)
Quarter: 2021Q3

REPORT INFORMATION
  Report Type: Spontaneous
  Country: US (occurrence: US)
  Receive Date: 20210806
  Receipt Date: 20210806
  Transmission Date: 20211014
  Serious: Yes (Other)
  Sender: FDA-Public Use
  Company Number: US-ACCORD-220451

PATIENT
  Age: 47 Year
  Sex: Female

DRUGS (7)
  1. VENLAFAXINE/VENLAFAXINE HYDROCHLORIDE [Concomitant]
     Active Substance: VENLAFAXINE HYDROCHLORIDE
     Dosage: STRENGTH?75 MG, 1 TWICE A DAY (BID)
     Route: 048
     Dates: start: 20170428
  2. CYTOXAN [Suspect]
     Active Substance: CYCLOPHOSPHAMIDE
     Indication: CHEMOTHERAPY
  3. SALBUTAMOL [Concomitant]
     Active Substance: ALBUTEROL
     Dosage: 2 PUFFS Q 6 HRS.  PRN, HFA 90 MEG/ ACTUATION AEROSOL INHALE
     Dates: start: 20161229
  4. DOCETAXEL ACCORD [Suspect]
     Active Substance: DOCETAXEL
     Indication: CHEMOTHERAPY
     Dates: start: 20180101, end: 20180430
  5. GABAPENTIN. [Concomitant]
     Active Substance: GABAPENTIN
     Dosage: STRENGTH?300 MG, 1 P.O. THREE TIMES A DAY (TID)
     Route: 048
     Dates: start: 20170428
  6. EPIRUBICIN [Suspect]
     Active Substance: EPIRUBICIN
     Indication: CHEMOTHERAPY
  7. NORCO [Concomitant]
     Active Substance: ACETAMINOPHEN\HYDROCODONE BITARTRATE
     Indication: PAIN
     Dosage: STRENGTH?5 MG?325 MG, TAKE 1 TO 2 EVERY 4 1 TO 6 HOURS
     Dates: start: 20170410

REACTIONS (4)
  - Wheezing [Unknown]
  - Palmar-plantar erythrodysaesthesia syndrome [Unknown]
  - Neuropathy peripheral [Unknown]
  - Dacryostenosis acquired [Unknown]
